FAERS Safety Report 24108681 (Version 2)
Quarter: 2025Q3

REPORT INFORMATION
  Report Type: Spontaneous
  Country: US (occurrence: US)
  Receive Date: 20240718
  Receipt Date: 20250827
  Transmission Date: 20251020
  Serious: No
  Sender: UCB
  Company Number: US-UCBSA-2024035881

PATIENT

DRUGS (1)
  1. FINTEPLA [Suspect]
     Active Substance: FENFLURAMINE
     Indication: Product used for unknown indication

REACTIONS (1)
  - Right ventricular systolic pressure increased [Unknown]
